FAERS Safety Report 18022825 (Version 2)
Quarter: 2022Q4

REPORT INFORMATION
  Report Type: Report from Study
  Country: FR (occurrence: FR)
  Receive Date: 20200715
  Receipt Date: 20221201
  Transmission Date: 20230112
  Serious: Yes (Death, Other)
  Sender: FDA-Public Use
  Company Number: FR-BAXTER-2020BAX014435

PATIENT
  Age: 74 Year
  Sex: Female

DRUGS (3)
  1. DOXORUBICIN [Suspect]
     Active Substance: DOXORUBICIN
     Indication: Plasma cell myeloma
     Dosage: 64 MG/DOSE 1 DOSE(S)/WEEK
     Route: 065
     Dates: end: 20171216
  2. VELCADE [Suspect]
     Active Substance: BORTEZOMIB
     Indication: Plasma cell myeloma
     Dosage: 2.1 MG/DOSE 2 DOSE(S)/WEEK
     Route: 065
     Dates: end: 20171216
  3. DEXAMETHASONE [Suspect]
     Active Substance: DEXAMETHASONE
     Indication: Plasma cell myeloma
     Dosage: 20 D1 TO D2, D4 TO D5, D8 TO D9D,11
     Route: 065
     Dates: end: 20171216

REACTIONS (1)
  - Death [Fatal]
